FAERS Safety Report 9948400 (Version 1)
Quarter: 2014Q1

REPORT INFORMATION
  Report Type: Spontaneous
  Country: US (occurrence: None)
  Receive Date: 20140122
  Receipt Date: 20140122
  Transmission Date: 20141002
  Serious: Yes (Other)
  Sender: FDA-Public Use
  Company Number: PHEH2013US024237

PATIENT
  Age: 8 Year
  Sex: Male

DRUGS (2)
  1. TOBI PODHALER [Suspect]
     Route: 055
     Dates: start: 20131101, end: 20131114
  2. TOBI PODHALER [Suspect]
     Route: 055
     Dates: start: 20131101, end: 20131114

REACTIONS (3)
  - Pyrexia [None]
  - Dizziness [None]
  - Cough [None]
